FAERS Safety Report 7861177-9 (Version None)
Quarter: 2011Q4

REPORT INFORMATION
  Report Type: 
  Country: None (occurrence: None)
  Receive Date: 20111025
  Receipt Date: 20111011
  Transmission Date: 20120403
  Serious: Yes (Hospitalization)
  Sender: FDA-Public Use
  Company Number: 11-262

PATIENT
  Age: 63 Year
  Sex: Male

DRUGS (12)
  1. LANSOPRAZOLE [Concomitant]
  2. OXYNORM (COXOCODONE HCI) [Concomitant]
  3. IBUPROFEN [Suspect]
     Indication: BACK PAIN
     Dates: start: 20090918, end: 20110514
  4. ENOXAPARIN SODIUM [Concomitant]
  5. CYCLIZINE [Concomitant]
  6. ACETAMINOPHEN [Concomitant]
  7. PREDNISONE [Suspect]
     Indication: PROSTATE CANCER
     Dosage: 5 MG (2X/DAY);ORAL
     Route: 048
     Dates: start: 20090904, end: 20100516
  8. FENTANYL [Concomitant]
  9. ZOLADEX [Concomitant]
  10. SUNITINIB MALATE [Suspect]
     Indication: PROSTATE CANCER
     Dosage: 25 MG, ORAL
     Route: 048
     Dates: start: 20090905, end: 20100513
  11. MOVIPREP [Concomitant]
  12. GENATOSAN MULTIVITAMINS [Concomitant]

REACTIONS (1)
  - VOMITING [None]
